FAERS Safety Report 11198936 (Version 2)
Quarter: 2015Q2

REPORT INFORMATION
  Report Type: Spontaneous
  Country: BR (occurrence: BR)
  Receive Date: 20150618
  Receipt Date: 20150624
  Transmission Date: 20150821
  Serious: Yes (Other)
  Sender: FDA-Public Use
  Company Number: BR-PFIZER INC-2015199304

PATIENT
  Age: 83 Year
  Sex: Male

DRUGS (2)
  1. ADVIL [Suspect]
     Active Substance: IBUPROFEN
     Indication: MUSCULOSKELETAL PAIN
  2. ADVIL [Suspect]
     Active Substance: IBUPROFEN
     Indication: SPINAL PAIN
     Route: 048

REACTIONS (7)
  - Oesophageal disorder [Not Recovered/Not Resolved]
  - Feeling abnormal [Unknown]
  - Oesophageal stenosis [Unknown]
  - Dysgeusia [Unknown]
  - Dysphagia [Unknown]
  - Product difficult to swallow [Unknown]
  - Product size issue [Unknown]
